FAERS Safety Report 18921385 (Version 1)
Quarter: 2021Q1

REPORT INFORMATION
  Report Type: Spontaneous
  Country: US (occurrence: US)
  Receive Date: 20210220
  Receipt Date: 20210220
  Transmission Date: 20210420
  Serious: Yes (Other)
  Sender: FDA-Public Use
  Company Number: None

PATIENT
  Age: 69 Year
  Sex: Male
  Weight: 73.8 kg

DRUGS (32)
  1. GENTEAL SEVERE 0.3% [Concomitant]
  2. FERROUS SULFATE 325MG [Concomitant]
     Active Substance: FERROUS SULFATE
  3. VITAMIN C 500MG [Concomitant]
  4. GEL TEARS [Concomitant]
  5. CENTRUM ADULTS [Concomitant]
  6. ALPHAGAN P [Concomitant]
     Active Substance: BRIMONIDINE TARTRATE
  7. ONDANSETRON 4MG [Concomitant]
     Active Substance: ONDANSETRON
  8. MIRALAX 17GM [Concomitant]
  9. ZOVIRAX [Concomitant]
     Active Substance: ACYCLOVIR
  10. NYSTATIN. [Concomitant]
     Active Substance: NYSTATIN
  11. ARTIFICIAL TEARS [Concomitant]
     Active Substance: GLYCERIN\HYPROMELLOSES\POLYETHYLENE GLYCOL 400
  12. SENNA 8.6MG [Concomitant]
  13. FAMOTIDINE. [Concomitant]
     Active Substance: FAMOTIDINE
  14. TAMSULOSIN [Concomitant]
     Active Substance: TAMSULOSIN
  15. EUCERIN [Concomitant]
     Active Substance: ENSULIZOLE\EUCERIN\OCTINOXATE\OCTISALATE\TITANIUM DIOXIDE\ZINC OXIDE
  16. BARRIER CREAM [Concomitant]
  17. DAILY VITE [Concomitant]
     Active Substance: VITAMINS
  18. ZOLPIDEM [Concomitant]
     Active Substance: ZOLPIDEM TARTRATE
  19. FINASTERIDE 5MG [Concomitant]
     Active Substance: FINASTERIDE
  20. FLUOXETINE [Concomitant]
     Active Substance: FLUOXETINE HYDROCHLORIDE
  21. PEPTO?BISMOL [Concomitant]
     Active Substance: BISMUTH SUBSALICYLATE
  22. LORATADINE 10MG [Concomitant]
     Active Substance: LORATADINE
  23. DOCUSATE 100MG [Concomitant]
     Active Substance: DOCUSATE
  24. LAMOTRIGINE 25MG [Concomitant]
     Active Substance: LAMOTRIGINE
  25. ROBITUSSIN COUGH/CHEST DM [Concomitant]
  26. CALCIUM/VITAMIN D 600/400MG [Concomitant]
  27. SIMETHICONE 125MG [Concomitant]
  28. ATORVASTATIN 20MG [Concomitant]
     Active Substance: ATORVASTATIN
  29. TYLENOL [Concomitant]
     Active Substance: ACETAMINOPHEN
  30. CAPECITABINE. [Suspect]
     Active Substance: CAPECITABINE
     Indication: RECTAL CANCER
     Dosage: ?          OTHER FREQUENCY:BID X14DAYS, 7 OFF;?
     Route: 048
     Dates: start: 20210109, end: 20210219
  31. TRIAMCINOLONE [Concomitant]
     Active Substance: TRIAMCINOLONE
  32. OSMOLITE [Concomitant]

REACTIONS (1)
  - Hospice care [None]

NARRATIVE: CASE EVENT DATE: 20210219
